FAERS Safety Report 11795216 (Version 1)
Quarter: 2015Q4

REPORT INFORMATION
  Report Type: Spontaneous
  Country: CA (occurrence: CA)
  Receive Date: 20151202
  Receipt Date: 20151202
  Transmission Date: 20160305
  Serious: Yes (Other)
  Sender: FDA-Public Use
  Company Number: CA-TEVA-612987USA

PATIENT
  Age: 26 Year
  Sex: Female

DRUGS (2)
  1. TEVA-CLINDAMYCIN [Suspect]
     Active Substance: CLINDAMYCIN PHOSPHATE
     Indication: PHARYNGITIS STREPTOCOCCAL
     Dosage: 900 MILLIGRAM DAILY; UNIT DOSE: 1 PO TID X 7D
     Route: 048
     Dates: start: 20151119
  2. CORTICOSTEROID [Concomitant]
     Active Substance: CORTICOSTEROID NOS
     Indication: THROAT IRRITATION

REACTIONS (5)
  - Hallucination [Unknown]
  - Memory impairment [Unknown]
  - Hallucination, visual [Unknown]
  - Nightmare [Unknown]
  - Paranoia [Unknown]

NARRATIVE: CASE EVENT DATE: 201511
